FAERS Safety Report 8603098-X (Version None)
Quarter: 2012Q3

REPORT INFORMATION
  Report Type: 
  Country: None (occurrence: None)
  Receive Date: 20120817
  Receipt Date: 20110928
  Transmission Date: 20120928
  Serious: No
  Sender: FDA-Public Use
  Company Number: US-GLAXOSMITHKLINE-A0946289A

PATIENT
  Age: 46 Year
  Sex: Female

DRUGS (1)
  1. TAGAMET HB 200 [Suspect]
     Indication: DYSPEPSIA
     Dosage: 2TAB PER DAY
     Route: 048
     Dates: start: 20110901, end: 20110926

REACTIONS (2)
  - DRY MOUTH [None]
  - BREATH ODOUR [None]
